FAERS Safety Report 6549229-7 (Version None)
Quarter: 2010Q1

REPORT INFORMATION
  Report Type: 
  Country: None (occurrence: None)
  Receive Date: 20100125
  Receipt Date: 20100114
  Transmission Date: 20100710
  Serious: Yes (Hospitalization)
  Sender: FDA-Public Use
  Company Number: US-ASTRAZENECA-2009SE32358

PATIENT
  Sex: Male

DRUGS (2)
  1. SEROQUEL [Suspect]
     Dosage: 200 MG IN THE MORNING, 200 MG IN NOON AND 600 MG AT AFTERNOON
     Route: 048
  2. SEROQUEL [Suspect]
     Dosage: 300 MG IN THE MORNING, 1000 MG AT AFTERNOON
     Route: 048

REACTIONS (13)
  - BLINDNESS UNILATERAL [None]
  - CARDIAC DISORDER [None]
  - COMA [None]
  - FACIAL BONES FRACTURE [None]
  - HAND FRACTURE [None]
  - LOSS OF CONSCIOUSNESS [None]
  - MEMORY IMPAIRMENT [None]
  - MUSCLE INJURY [None]
  - PALPITATIONS [None]
  - RIB FRACTURE [None]
  - ROAD TRAFFIC ACCIDENT [None]
  - SKULL FRACTURE [None]
  - VOMITING [None]
